FAERS Safety Report 25210909 (Version 3)
Quarter: 2025Q3

REPORT INFORMATION
  Report Type: Spontaneous
  Country: US (occurrence: US)
  Receive Date: 20250417
  Receipt Date: 20250714
  Transmission Date: 20251021
  Serious: No
  Sender: BRISTOL-MYERS SQUIBB COMPANY
  Company Number: US-BRISTOL-MYERS SQUIBB COMPANY-2025-057178

PATIENT
  Age: 85 Year
  Sex: Female
  Weight: 82.55 kg

DRUGS (1)
  1. REVLIMID [Suspect]
     Active Substance: LENALIDOMIDE
     Indication: Follicular lymphoma stage III
     Route: 048

REACTIONS (5)
  - Nasopharyngitis [Recovered/Resolved]
  - Cough [Recovering/Resolving]
  - Pruritus [Recovering/Resolving]
  - Ear pruritus [Recovering/Resolving]
  - Infection [Unknown]
